FAERS Safety Report 7754734-1 (Version None)
Quarter: 2011Q3

REPORT INFORMATION
  Report Type: 
  Country: None (occurrence: None)
  Receive Date: 20110915
  Receipt Date: 20110902
  Transmission Date: 20111222
  Serious: Yes (Hospitalization)
  Sender: FDA-Public Use
  Company Number: GB-MYLANLABS-2011S1018465

PATIENT
  Age: 75 Year
  Sex: Male

DRUGS (2)
  1. PRILOSEC [Concomitant]
     Indication: PRODUCT USED FOR UNKNOWN INDICATION
  2. SIMVASTATIN [Suspect]
     Indication: PROPHYLAXIS

REACTIONS (4)
  - EXTRASYSTOLES [None]
  - BODY TEMPERATURE DECREASED [None]
  - BRADYCARDIA [None]
  - PALPITATIONS [None]
